FAERS Safety Report 19766940 (Version 1)
Quarter: 2021Q3

REPORT INFORMATION
  Report Type: Spontaneous
  Country: US (occurrence: US)
  Receive Date: 20210830
  Receipt Date: 20210830
  Transmission Date: 20211014
  Serious: No
  Sender: FDA-Public Use
  Company Number: None

PATIENT
  Age: 46 Year
  Sex: Female

DRUGS (1)
  1. THC CHOCOLATE BAR [Suspect]
     Active Substance: .DELTA.8-TETRAHYDROCANNABINOL

REACTIONS (1)
  - Malaise [None]

NARRATIVE: CASE EVENT DATE: 20210821
